FAERS Safety Report 14905480 (Version 1)
Quarter: 2018Q2

REPORT INFORMATION
  Report Type: Spontaneous
  Country: US (occurrence: US)
  Receive Date: 20180517
  Receipt Date: 20180517
  Transmission Date: 20180711
  Serious: No
  Sender: FDA-Public Use
  Company Number: US-SA-2017SA262814

PATIENT
  Sex: Female

DRUGS (2)
  1. SOLOSTAR [Suspect]
     Active Substance: DEVICE
     Indication: DIABETES MELLITUS
     Dates: start: 2006
  2. LANTUS SOLOSTAR [Suspect]
     Active Substance: INSULIN GLARGINE
     Indication: DIABETES MELLITUS
     Dosage: DOSE: 6-7 U IN THE AM; 6-7 U IN THE PM
     Route: 051
     Dates: start: 2006

REACTIONS (5)
  - Feeling abnormal [Unknown]
  - Motor dysfunction [Unknown]
  - Hyperglycaemia [Unknown]
  - Gait disturbance [Unknown]
  - Blood glucose increased [Unknown]
